FAERS Safety Report 5838830-1 (Version None)
Quarter: 2008Q3

REPORT INFORMATION
  Report Type: 
  Country: None (occurrence: None)
  Receive Date: 20080801
  Receipt Date: 20080502
  Transmission Date: 20090109
  Serious: Yes (Other)
  Sender: FDA-Public Use
  Company Number: 545252

PATIENT
  Age: 68 Year
  Sex: Female
  Weight: 78.5 kg

DRUGS (4)
  1. BONIVA [Suspect]
     Indication: OSTEOPOROSIS
     Dosage: 1 PER ONE DOSE INTRAVENOUS
     Route: 042
     Dates: start: 20080229, end: 20080229
  2. BONIVA [Suspect]
     Indication: OSTEOPOROSIS
     Dates: start: 20071001, end: 20071201
  3. EFFEXOR [Concomitant]
  4. CALCIUM/VITAMIN D (CALCIUM/VITAMIN D) [Concomitant]

REACTIONS (7)
  - CHEST DISCOMFORT [None]
  - CHOKING SENSATION [None]
  - INJECTION SITE DISCOMFORT [None]
  - INSOMNIA [None]
  - OESOPHAGEAL PAIN [None]
  - PAIN IN EXTREMITY [None]
  - PARAESTHESIA [None]
